FAERS Safety Report 5247767-0 (Version None)
Quarter: 2007Q1

REPORT INFORMATION
  Report Type: 
  Country: None (occurrence: None)
  Receive Date: 20070220
  Receipt Date: 20070209
  Transmission Date: 20070707
  Serious: Yes (Death)
  Sender: FDA-Public Use
  Company Number: T200700176

PATIENT
  Age: 29 Year
  Sex: Female
  Weight: 131.5 kg

DRUGS (3)
  1. OPTIRAY 320 [Suspect]
     Indication: COMPUTERISED TOMOGRAM ABDOMEN
     Dosage: 100 ML, SINGLE, INTRAVENOUS
     Route: 042
     Dates: start: 20060605, end: 20060605
  2. ROCEPHIN [Suspect]
     Dosage: UNK, SINGLE, INTRAVENOUS
     Route: 042
     Dates: start: 20060605, end: 20060605
  3. LEVAQUIN [Suspect]
     Dosage: UNK, SINGLE, INTRAVENOUS
     Route: 042
     Dates: start: 20060605, end: 20060605

REACTIONS (4)
  - ANAPHYLACTIC REACTION [None]
  - ASTHMA [None]
  - ATELECTASIS [None]
  - VENTRICULAR FIBRILLATION [None]
